FAERS Safety Report 6217058-X (Version None)
Quarter: 2009Q2

REPORT INFORMATION
  Report Type: 
  Country: None (occurrence: None)
  Receive Date: 20090606
  Receipt Date: 20090524
  Transmission Date: 20091009
  Serious: Yes (Death, Hospitalization, Other)
  Sender: FDA-Public Use
  Company Number: US-PFIZER INC-2009198065

PATIENT
  Sex: Male
  Weight: 64.9 kg

DRUGS (4)
  1. CISPLATIN [Suspect]
     Indication: BLADDER CANCER
     Dosage: 70 MG/M2, DAY1 OF CYCLE
     Route: 042
     Dates: start: 20090202, end: 20090411
  2. SUTENT [Suspect]
     Indication: BLADDER CANCER
     Dosage: 37.5 MG, DAILY X 14 DAYS OF CYCLE
     Route: 048
     Dates: start: 20090202, end: 20090411
  3. GEMCITABINE [Suspect]
     Indication: BLADDER CANCER
     Dosage: 1000 MG/M2, DAY1, DAY8 OF CYCLE
     Route: 042
     Dates: start: 20090202, end: 20090411
  4. COMPAZINE [Concomitant]
     Indication: NAUSEA
     Dosage: UNK
     Dates: start: 20090202, end: 20090411

REACTIONS (5)
  - ASTHENIA [None]
  - DYSPNOEA [None]
  - PANCYTOPENIA [None]
  - RESPIRATORY FAILURE [None]
  - SEPTIC SHOCK [None]
